FAERS Safety Report 15352017 (Version 2)
Quarter: 2019Q3

REPORT INFORMATION
  Report Type: Spontaneous
  Country: CA (occurrence: CA)
  Receive Date: 20180905
  Receipt Date: 20190930
  Transmission Date: 20191004
  Serious: Yes (Other)
  Sender: FDA-Public Use
  Company Number: CA-PFIZER INC-2018354018

PATIENT
  Age: 15 Month
  Sex: Female
  Weight: 7.5 kg

DRUGS (7)
  1. REMODULIN [Suspect]
     Active Substance: TREPROSTINIL
     Dosage: 0.100 TO 0.105 UG/KG, 1 EVERY 1 MINUTE (1 IN 1 MIN)
     Route: 058
  2. BOSENTAN. [Suspect]
     Active Substance: BOSENTAN
     Dosage: UNK
     Route: 065
  3. REMODULIN [Suspect]
     Active Substance: TREPROSTINIL
     Dosage: UNK, 1 EVERY 1 MINUTE (1 IN 1 MIN )
     Route: 058
     Dates: start: 20131231
  4. REMODULIN [Suspect]
     Active Substance: TREPROSTINIL
     Dosage: 144 UG/KG (0.1 UG/KG, 1 EVERY 1 MINUTE (1 IN 1 MIN))
     Route: 058
     Dates: start: 20140120
  5. SILDENAFIL CITRATE. [Suspect]
     Active Substance: SILDENAFIL CITRATE
     Dosage: UNK
     Route: 065
  6. REMODULIN [Suspect]
     Active Substance: TREPROSTINIL
     Dosage: 57.6 UG/KG (0.04 UG/KG, 1 EVERY 1 MINUTE (1 IN 1 MIN))
     Route: 058
     Dates: start: 20140101
  7. REMODULIN [Suspect]
     Active Substance: TREPROSTINIL
     Indication: PULMONARY HYPERTENSION
     Dosage: UNK
     Route: 041
     Dates: start: 20131221

REACTIONS (12)
  - Dry skin [Unknown]
  - Flushing [Unknown]
  - Oxygen saturation decreased [Unknown]
  - Gastrointestinal oedema [Unknown]
  - Nausea [Unknown]
  - Dizziness [Unknown]
  - Pruritus [Unknown]
  - Vomiting [Unknown]
  - Diarrhoea [Unknown]
  - Product use issue [Unknown]
  - Off label use [Unknown]
  - Oedema peripheral [Unknown]

NARRATIVE: CASE EVENT DATE: 201403
